FAERS Safety Report 12880754 (Version 1)
Quarter: 2016Q4

REPORT INFORMATION
  Report Type: Spontaneous
  Country: US (occurrence: US)
  Receive Date: 20161025
  Receipt Date: 20161025
  Transmission Date: 20170207
  Serious: No
  Sender: FDA-Public Use
  Company Number: US-GLAXOSMITHKLINE-US2016155132

PATIENT
  Sex: Male

DRUGS (1)
  1. ACITRETIN CAPSULE [Suspect]
     Active Substance: ACITRETIN
     Indication: LICHEN PLANUS
     Dosage: 25 MG, QOD
     Route: 048
     Dates: start: 20160927

REACTIONS (2)
  - Therapeutic response decreased [Not Recovered/Not Resolved]
  - Rash vesicular [Unknown]
